FAERS Safety Report 19905887 (Version 1)
Quarter: 2021Q3

REPORT INFORMATION
  Report Type: Spontaneous
  Country: JP (occurrence: JP)
  Receive Date: 20210930
  Receipt Date: 20210930
  Transmission Date: 20211014
  Serious: Yes (Other)
  Sender: FDA-Public Use
  Company Number: NVSJ2021JP014357

PATIENT

DRUGS (2)
  1. NEORAL [Suspect]
     Active Substance: CYCLOSPORINE
     Dosage: 7 MG/KG
     Route: 048
  2. NEORAL [Suspect]
     Active Substance: CYCLOSPORINE
     Indication: NEPHROTIC SYNDROME
     Dosage: 5 MG/KG
     Route: 048

REACTIONS (4)
  - Blood pressure increased [Unknown]
  - Immunosuppressant drug level increased [Recovering/Resolving]
  - Dehydration [Unknown]
  - Posterior reversible encephalopathy syndrome [Recovered/Resolved]
